FAERS Safety Report 24853961 (Version 2)
Quarter: 2025Q1

REPORT INFORMATION
  Report Type: Report from Study
  Country: MY (occurrence: MY)
  Receive Date: 20250117
  Receipt Date: 20250128
  Transmission Date: 20250408
  Serious: Yes (Other)
  Sender: EMD SERONO INC
  Company Number: MY-Merck Healthcare KGaA-2025001911

PATIENT
  Sex: Female

DRUGS (1)
  1. REBIF [Suspect]
     Active Substance: INTERFERON BETA-1A
     Indication: Relapsing multiple sclerosis

REACTIONS (2)
  - Glucose-6-phosphate dehydrogenase deficiency [Unknown]
  - Foetal exposure during pregnancy [Recovered/Resolved]
